FAERS Safety Report 11023969 (Version 2)
Quarter: 2015Q2

REPORT INFORMATION
  Report Type: Spontaneous
  Country: US (occurrence: US)
  Receive Date: 20150413
  Receipt Date: 20150525
  Transmission Date: 20150821
  Serious: Yes (Other)
  Sender: FDA-Public Use
  Company Number: US-JNJFOC-20100407604

PATIENT
  Age: 40 Year
  Sex: Male

DRUGS (2)
  1. LEVAQUIN [Suspect]
     Active Substance: LEVOFLOXACIN
     Indication: SINUSITIS
     Route: 048
  2. LEVAQUIN [Suspect]
     Active Substance: LEVOFLOXACIN
     Indication: EAR INFECTION
     Route: 048

REACTIONS (5)
  - Raynaud^s phenomenon [Unknown]
  - Arrhythmia [Unknown]
  - Tendonitis [Unknown]
  - Tendonitis [Unknown]
  - Depression [Unknown]

NARRATIVE: CASE EVENT DATE: 200803
